FAERS Safety Report 7783068-4 (Version None)
Quarter: 2011Q3

REPORT INFORMATION
  Report Type: 
  Country: None (occurrence: None)
  Receive Date: 20110928
  Receipt Date: 20110923
  Transmission Date: 20111222
  Serious: No
  Sender: FDA-Public Use
  Company Number: US-PFIZER INC-2011226987

PATIENT

DRUGS (3)
  1. EFFEXOR XR [Suspect]
     Dosage: 75 MG, DAILY
  2. EFFEXOR XR [Suspect]
     Dosage: 37.5 MG, UNK
  3. TRAZODONE HCL [Suspect]
     Dosage: UNK

REACTIONS (1)
  - DRUG WITHDRAWAL SYNDROME [None]
